FAERS Safety Report 15065142 (Version 1)
Quarter: 2018Q2

REPORT INFORMATION
  Report Type: Report from Study
  Country: IT (occurrence: IT)
  Receive Date: 20180626
  Receipt Date: 20180626
  Transmission Date: 20180711
  Serious: Yes (Hospitalization)
  Sender: FDA-Public Use
  Company Number: IT-ROCHE-2026263

PATIENT
  Age: 67 Year
  Sex: Female
  Weight: 77 kg

DRUGS (7)
  1. PRITOR PLUS [Concomitant]
     Active Substance: TELMISARTAN
     Route: 065
     Dates: start: 20100310
  2. EN [Concomitant]
     Active Substance: DELORAZEPAM
     Indication: MAJOR DEPRESSION
     Route: 065
     Dates: start: 20131218, end: 20171113
  3. TAXOTERE [Suspect]
     Active Substance: DOCETAXEL
     Indication: BREAST CANCER METASTATIC
     Route: 042
     Dates: start: 20170726
  4. TRASTUZUMAB. [Suspect]
     Active Substance: TRASTUZUMAB
     Indication: BREAST CANCER METASTATIC
     Route: 042
     Dates: start: 20170726
  5. EUTIROX [Concomitant]
     Active Substance: LEVOTHYROXINE SODIUM
     Route: 065
  6. SERTRALINE [Concomitant]
     Active Substance: SERTRALINE HYDROCHLORIDE
     Route: 065
     Dates: start: 20131215
  7. EN [Concomitant]
     Active Substance: DELORAZEPAM
     Route: 065
     Dates: start: 20171113

REACTIONS (1)
  - Major depression [Recovered/Resolved]

NARRATIVE: CASE EVENT DATE: 20171113
